FAERS Safety Report 11772772 (Version 1)
Quarter: 2015Q4

REPORT INFORMATION
  Report Type: Spontaneous
  Country: US (occurrence: US)
  Receive Date: 20151124
  Receipt Date: 20151124
  Transmission Date: 20160304
  Serious: No
  Sender: FDA-Public Use
  Company Number: US-MALLINCKRODT-T201500966

PATIENT
  Sex: Female

DRUGS (3)
  1. GABLOFEN [Suspect]
     Active Substance: BACLOFEN
     Indication: MUSCLE SPASTICITY
     Dosage: 25 UG/D, UNK
     Route: 037
  2. SALINE ORAL OTC [Concomitant]
     Active Substance: SODIUM CHLORIDE
  3. GABLOFEN [Suspect]
     Active Substance: BACLOFEN
     Dosage: 75 MCG, UNK
     Route: 037

REACTIONS (3)
  - Psychosomatic disease [Not Recovered/Not Resolved]
  - Headache [Not Recovered/Not Resolved]
  - Somnolence [Not Recovered/Not Resolved]
